FAERS Safety Report 7929609-5 (Version None)
Quarter: 2011Q4

REPORT INFORMATION
  Report Type: 
  Country: None (occurrence: None)
  Receive Date: 20111121
  Receipt Date: 20111004
  Transmission Date: 20120403
  Serious: Yes (Hospitalization, Other)
  Sender: FDA-Public Use
  Company Number: US-BAYER-201022568NA

PATIENT
  Age: 39 Year
  Sex: Female
  Weight: 144 kg

DRUGS (18)
  1. EFFEXOR [Concomitant]
     Indication: ANXIETY
     Dosage: UNK
     Dates: start: 20060101
  2. GLUCOPHAGE [Concomitant]
     Indication: POLYCYSTIC OVARIES
     Dosage: 1000 MG, UNK
     Dates: start: 20000101
  3. NEXIUM [Concomitant]
     Dosage: 40 MG, UNK
     Dates: start: 20060101, end: 20090101
  4. EXCEDRIN NOS [Concomitant]
     Indication: MIGRAINE
     Dosage: UNK UNK, PRN
  5. PRECARE [Concomitant]
     Dosage: 100 MG, UNK
     Route: 048
     Dates: start: 20030423
  6. LISINOPRIL [Concomitant]
     Indication: BLOOD PRESSURE MANAGEMENT
     Dosage: UNK
     Dates: start: 20070101
  7. BLOOD PRESSURE MEDICATION (NOS) [Concomitant]
  8. NSAID'S [Concomitant]
     Dosage: UNK UNK, PRN
  9. GLUCOPHAGE [Concomitant]
     Dosage: 500 MG, UNK
     Route: 048
     Dates: start: 20020221
  10. METFORMIN HCL [Concomitant]
     Route: 048
  11. DONNATAL [Concomitant]
     Dosage: 16.2 MG, UNK
     Route: 048
     Dates: start: 20060705
  12. ZEGANID [Concomitant]
  13. OTHER ANTI-ASTHMATICS, INHALANTS [Concomitant]
  14. YASMIN [Suspect]
     Indication: UNEVALUABLE EVENT
     Dosage: UNK
     Dates: start: 20001001
  15. ANTIBIOTICS [Concomitant]
     Dosage: UNK UNK, PRN
  16. LEXAPRO [Concomitant]
     Dosage: 20 MG, UNK
     Route: 048
  17. ASPIRIN [Concomitant]
     Dosage: 81 MG, UNK
     Route: 048
     Dates: start: 20051010
  18. ZANTAC [Concomitant]
     Dosage: 150 MG, UNK
     Route: 048
     Dates: start: 20060705

REACTIONS (6)
  - ANGINA PECTORIS [None]
  - PALPITATIONS [None]
  - ABDOMINAL PAIN [None]
  - GALLBLADDER DISORDER [None]
  - BILIARY DYSKINESIA [None]
  - CHOLELITHIASIS [None]
